FAERS Safety Report 23810277 (Version 1)
Quarter: 2024Q2

REPORT INFORMATION
  Report Type: Spontaneous
  Country: RU (occurrence: RU)
  Receive Date: 20240502
  Receipt Date: 20240502
  Transmission Date: 20240717
  Serious: Yes (Hospitalization, Other)
  Sender: FDA-Public Use
  Company Number: RU-SANDOZ-SDZ2024RU043338

PATIENT

DRUGS (1)
  1. METHOTREXATE [Suspect]
     Active Substance: METHOTREXATE
     Indication: Juvenile idiopathic arthritis
     Dosage: 11 MG, QW
     Route: 065
     Dates: start: 202207

REACTIONS (4)
  - Gastroenteritis [Not Recovered/Not Resolved]
  - Lethargy [Unknown]
  - Asthenia [Unknown]
  - Abdominal pain [Unknown]

NARRATIVE: CASE EVENT DATE: 20231201
